FAERS Safety Report 12971368 (Version 1)
Quarter: 2016Q4

REPORT INFORMATION
  Report Type: Spontaneous
  Country: US (occurrence: US)
  Receive Date: 20161123
  Receipt Date: 20161123
  Transmission Date: 20170207
  Serious: No
  Sender: FDA-Public Use
  Company Number: US-JAZZ-2016-US-019903

PATIENT
  Sex: Female

DRUGS (16)
  1. XYREM [Suspect]
     Active Substance: SODIUM OXYBATE
     Dosage: 2.5 G, BID
     Route: 048
     Dates: start: 201606, end: 2016
  2. IRON [Concomitant]
     Active Substance: IRON
  3. METHYLPHENIDATE. [Concomitant]
     Active Substance: METHYLPHENIDATE
  4. RITALIN [Concomitant]
     Active Substance: METHYLPHENIDATE HYDROCHLORIDE
  5. XULANE [Concomitant]
     Active Substance: ETHINYL ESTRADIOL\NORELGESTROMIN
  6. FLUVOXAMINE MALEATE. [Concomitant]
     Active Substance: FLUVOXAMINE MALEATE
  7. VYVANSE [Concomitant]
     Active Substance: LISDEXAMFETAMINE DIMESYLATE
  8. NUVIGIL [Concomitant]
     Active Substance: ARMODAFINIL
  9. XYREM [Suspect]
     Active Substance: SODIUM OXYBATE
     Dosage: 2.5 G, QD
     Route: 048
     Dates: start: 201609
  10. ZOVIA [Concomitant]
     Active Substance: ETHINYL ESTRADIOL\ETHYNODIOL DIACETATE
  11. ALOE VERA [Concomitant]
     Active Substance: ALOE VERA LEAF
  12. XYREM [Suspect]
     Active Substance: SODIUM OXYBATE
     Indication: NARCOLEPSY
     Dosage: 2.25 G, BID
     Route: 048
     Dates: start: 201603, end: 2016
  13. VITAMIN C [Concomitant]
     Active Substance: ASCORBIC ACID
  14. FLUCONAZOLE. [Concomitant]
     Active Substance: FLUCONAZOLE
  15. SUPREP BOWEL PREP [Concomitant]
     Active Substance: MAGNESIUM SULFATE\POTASSIUM SULFATE\SODIUM SULFATE
  16. NEXPLANON [Concomitant]
     Active Substance: ETONOGESTREL

REACTIONS (2)
  - Somnolence [Unknown]
  - Intentional product misuse [Unknown]
